FAERS Safety Report 25382507 (Version 2)
Quarter: 2025Q3

REPORT INFORMATION
  Report Type: Spontaneous
  Country: GB (occurrence: GB)
  Receive Date: 20250601
  Receipt Date: 20250809
  Transmission Date: 20251020
  Serious: Yes (Other)
  Sender: ALEXION PHARMACEUTICALS
  Company Number: None

PATIENT
  Age: 64 Year
  Sex: Male
  Weight: 61 kg

DRUGS (1)
  1. DAPAGLIFLOZIN [Suspect]
     Active Substance: DAPAGLIFLOZIN
     Dosage: 10MG ONCE A DAY IN THE MORNING
     Route: 065

REACTIONS (2)
  - Medication error [Unknown]
  - Diabetic ketoacidosis [Recovered/Resolved]
